FAERS Safety Report 20163482 (Version 1)
Quarter: 2021Q4

REPORT INFORMATION
  Report Type: Spontaneous
  Country: PT (occurrence: PT)
  Receive Date: 20211209
  Receipt Date: 20211209
  Transmission Date: 20220303
  Serious: Yes (Other)
  Sender: FDA-Public Use
  Company Number: None

PATIENT
  Age: 68 Year
  Sex: Male
  Weight: 81.5 kg

DRUGS (2)
  1. OCTREOTIDE [Suspect]
     Active Substance: OCTREOTIDE
     Indication: Neuroendocrine tumour
     Dosage: UNIT DOSE :30 MG ,1 AMPOULE 30 MG EVERY 28 DAYS ,DEPOT
     Route: 030
     Dates: start: 20210923
  2. LANSOPRAZOLE [Concomitant]
     Active Substance: LANSOPRAZOLE
     Dates: start: 20171023

REACTIONS (5)
  - Injection site pain [Recovering/Resolving]
  - Swelling [Recovering/Resolving]
  - Product substitution issue [Recovering/Resolving]
  - Injection site inflammation [Recovering/Resolving]
  - Gait disturbance [Recovering/Resolving]

NARRATIVE: CASE EVENT DATE: 20211022
